FAERS Safety Report 9434207 (Version 1)
Quarter: 2013Q3

REPORT INFORMATION
  Report Type: Spontaneous
  Country: US (occurrence: None)
  Receive Date: 20130730
  Receipt Date: 20130730
  Transmission Date: 20140515
  Serious: No
  Sender: FDA-Public Use
  Company Number: None

PATIENT
  Sex: Female

DRUGS (1)
  1. TECFIDERA [Suspect]
     Dosage: 240 MG PO TAKE 1 CAPSULE BY MOUTH TWICE A DAY
     Route: 048

REACTIONS (10)
  - Flushing [None]
  - Arthralgia [None]
  - Pain [None]
  - Pollakiuria [None]
  - Urine output increased [None]
  - Visual acuity reduced [None]
  - Fatigue [None]
  - Fatigue [None]
  - Depression [None]
  - Incorrect dose administered [None]
